FAERS Safety Report 7399868-9 (Version None)
Quarter: 2011Q2

REPORT INFORMATION
  Report Type: 
  Country: None (occurrence: None)
  Receive Date: 20110407
  Receipt Date: 20110330
  Transmission Date: 20111010
  Serious: Yes (Death, Other)
  Sender: FDA-Public Use
  Company Number: GB-WATSON-2011-01572

PATIENT
  Age: 64 Year
  Sex: Male
  Weight: 70 kg

DRUGS (2)
  1. SIMVASTATIN [Suspect]
     Indication: HYPERCHOLESTEROLAEMIA
     Dosage: 40 MG, DAILY
     Route: 048
     Dates: start: 20101015, end: 20101213
  2. THYROXINE [Suspect]
     Indication: HYPOTHYROIDISM
     Dosage: 50 UG, UNKNOWN
     Route: 048
     Dates: start: 20100301

REACTIONS (3)
  - THROMBOCYTOPENIA [None]
  - IDIOPATHIC THROMBOCYTOPENIC PURPURA [None]
  - CEREBRAL HAEMORRHAGE [None]
